FAERS Safety Report 24676840 (Version 3)
Quarter: 2024Q4

REPORT INFORMATION
  Report Type: Report from Study
  Country: US (occurrence: US)
  Receive Date: 20241128
  Receipt Date: 20241209
  Transmission Date: 20250114
  Serious: Yes (Hospitalization)
  Sender: ABBVIE
  Company Number: US-ABBVIE-6019959

PATIENT
  Age: 61 Year
  Sex: Female

DRUGS (2)
  1. SKYRIZI [Suspect]
     Active Substance: RISANKIZUMAB-RZAA
     Indication: Crohn^s disease
     Dosage: 360MG/2.4ML OBI
     Route: 058
     Dates: start: 20240828
  2. SKYRIZI [Suspect]
     Active Substance: RISANKIZUMAB-RZAA
     Indication: Crohn^s disease
     Dosage: START DATE TEXT: 3-6 MONTHS AGO FROM 22 NOV 2024
     Route: 042
     Dates: start: 20240101, end: 20240101

REACTIONS (6)
  - Nephrolithiasis [Recovering/Resolving]
  - Product preparation error [Not Recovered/Not Resolved]
  - Fatigue [Not Recovered/Not Resolved]
  - Rhinorrhoea [Not Recovered/Not Resolved]
  - Back pain [Recovering/Resolving]
  - Painful respiration [Recovering/Resolving]

NARRATIVE: CASE EVENT DATE: 20240101
